FAERS Safety Report 6829735-8 (Version None)
Quarter: 2010Q3

REPORT INFORMATION
  Report Type: 
  Country: None (occurrence: None)
  Receive Date: 20100706
  Receipt Date: 20100617
  Transmission Date: 20110219
  Serious: Yes (Disabling, Other)
  Sender: FDA-Public Use
  Company Number: ACO_01186_2010

PATIENT
  Sex: Male
  Weight: 54.4316 kg

DRUGS (1)
  1. AMPYRA [Suspect]
     Indication: GAIT DISTURBANCE
     Dosage: (10 MG QD ORAL)
     Route: 048
     Dates: start: 20100528

REACTIONS (2)
  - MOBILITY DECREASED [None]
  - MUSCLE TIGHTNESS [None]
